FAERS Safety Report 6604092-0 (Version None)
Quarter: 2010Q1

REPORT INFORMATION
  Report Type: 
  Country: None (occurrence: None)
  Receive Date: 20100226
  Receipt Date: 20090720
  Transmission Date: 20100710
  Serious: Yes (Other)
  Sender: FDA-Public Use
  Company Number: A0784672A

PATIENT
  Age: 17 Year
  Sex: Female
  Weight: 92.7 kg

DRUGS (4)
  1. LAMICTAL CD [Suspect]
     Dosage: 75MG PER DAY
     Route: 048
     Dates: start: 20090213, end: 20090410
  2. TOPAMAX [Concomitant]
     Dosage: 100MG PER DAY
     Route: 048
  3. WELLBUTRIN XL [Concomitant]
     Dosage: 150MG PER DAY
     Route: 048
  4. SEROQUEL [Concomitant]
     Dosage: 300MG PER DAY
     Route: 048

REACTIONS (4)
  - NAUSEA [None]
  - PHARYNGEAL ULCERATION [None]
  - STEVENS-JOHNSON SYNDROME [None]
  - VOMITING [None]
